FAERS Safety Report 8735596 (Version 2)
Quarter: 2012Q4

REPORT INFORMATION
  Report Type: 
  Country: US (occurrence: US)
  Receive Date: 20120822
  Receipt Date: 20120906
  Transmission Date: 20130627
  Serious: No
  Sender: FDA-Public Use
  Company Number: US-PFIZER INC-2012203483

PATIENT
  Age: 70 Year
  Sex: Female
  Weight: 77 kg

DRUGS (19)
  1. AMLODIPINE BESILATE [Suspect]
     Dosage: 5 mg, UNK
  2. METOPROLOL ER [Concomitant]
     Indication: HYPERTENSION
     Dosage: 25 mg
  3. SYNTHROID [Concomitant]
     Indication: HYPOTHYROIDISM
     Dosage: 0.075 mg
  4. FEXOFENADINE [Concomitant]
     Indication: HYPERSENSITIVITY
     Dosage: UNK
  5. MAXZIDE [Concomitant]
     Dosage: UNK
  6. CRESTOR [Concomitant]
     Indication: HYPERLIPIDAEMIA
     Dosage: 20 mg
  7. LOPERAMIDE [Concomitant]
     Indication: DIARRHOEA
     Dosage: UNK
  8. AZELASTINE [Concomitant]
     Indication: HYPERSENSITIVITY
     Dosage: UNK
  9. NASONEX [Concomitant]
     Indication: HYPERSENSITIVITY
     Dosage: UNK
  10. POTASSIUM [Concomitant]
     Indication: BLOOD POTASSIUM DECREASED
     Dosage: 20 mEq, 2x/day
  11. CITALOPRAM [Concomitant]
     Indication: DEPRESSION
     Dosage: 10 mg
  12. COUMADIN [Concomitant]
     Dosage: 5 mg
  13. LOSARTAN [Concomitant]
     Dosage: UNK
  14. HYDROCHLOROTHIAZIDE [Concomitant]
     Dosage: UNK
  15. VITAMIN C [Concomitant]
     Dosage: UNK
  16. VITAMIN D3 [Concomitant]
     Dosage: UNK
  17. CO-Q-10 [Concomitant]
     Dosage: 100 mg
  18. FOLIC ACID [Concomitant]
     Dosage: 400 ug, 1x/day
  19. LOVAZA [Concomitant]
     Dosage: UNK

REACTIONS (1)
  - Joint swelling [Unknown]
